FAERS Safety Report 21502921 (Version 1)
Quarter: 2022Q4

REPORT INFORMATION
  Report Type: Report from Study
  Country: DE (occurrence: DE)
  Receive Date: 20221025
  Receipt Date: 20221025
  Transmission Date: 20230113
  Serious: Yes (Hospitalization)
  Sender: FDA-Public Use
  Company Number: DE-ALCEDIS-CEMIAE241

PATIENT
  Sex: Male

DRUGS (1)
  1. CEMIPLIMAB [Suspect]
     Active Substance: CEMIPLIMAB
     Indication: Neoplasm malignant
     Dosage: 350 MG, Q3W
     Route: 042
     Dates: start: 20220420, end: 20220808

REACTIONS (1)
  - Gastric fistula [Recovered/Resolved]

NARRATIVE: CASE EVENT DATE: 20220821
